FAERS Safety Report 8953028 (Version 4)
Quarter: 2013Q1

REPORT INFORMATION
  Report Type: Spontaneous
  Country: FR (occurrence: FR)
  Receive Date: 20121205
  Receipt Date: 20130312
  Transmission Date: 20140127
  Serious: Yes (Death, Hospitalization)
  Sender: FDA-Public Use
  Company Number: FR-ABBOTT-12P-056-1017395-00

PATIENT
  Age: 32 None
  Sex: Male

DRUGS (6)
  1. ZECLAR [Suspect]
     Indication: SKIN INFECTION
     Route: 048
     Dates: start: 20040224, end: 20040225
  2. ZECLAR [Suspect]
     Indication: ACNE
  3. TERCIAN [Concomitant]
     Indication: PRODUCT USED FOR UNKNOWN INDICATION
     Route: 048
  4. DEPAKOTE [Concomitant]
     Indication: PRODUCT USED FOR UNKNOWN INDICATION
     Route: 048
  5. TRANXENE [Concomitant]
     Indication: PRODUCT USED FOR UNKNOWN INDICATION
     Route: 048
  6. FORLAX [Concomitant]
     Indication: PRODUCT USED FOR UNKNOWN INDICATION
     Route: 048

REACTIONS (19)
  - Pneumoperitoneum [Fatal]
  - Drug hypersensitivity [Fatal]
  - Acute respiratory distress syndrome [Fatal]
  - Nausea [Fatal]
  - Vomiting [Fatal]
  - Abdominal discomfort [Unknown]
  - Skin discolouration [Unknown]
  - Hypotension [Unknown]
  - Cardiogenic shock [Unknown]
  - Cardio-respiratory arrest [Unknown]
  - Gastric perforation [Unknown]
  - Gastric ulcer [Unknown]
  - Poor quality sleep [Unknown]
  - Pallor [Unknown]
  - Hyperhidrosis [Unknown]
  - Gastroenteritis [Unknown]
  - Peritonitis [Unknown]
  - Gastrointestinal perforation [Unknown]
  - General physical health deterioration [Unknown]
